FAERS Safety Report 8230318-6 (Version None)
Quarter: 2012Q1

REPORT INFORMATION
  Report Type: 
  Country: None (occurrence: None)
  Receive Date: 20120323
  Receipt Date: 20120321
  Transmission Date: 20120608
  Serious: Yes (Other)
  Sender: FDA-Public Use
  Company Number: US-PFIZER INC-2011296128

PATIENT
  Sex: Female

DRUGS (4)
  1. VALACICLOVIR HYDROCHLORIDE [Concomitant]
     Indication: HERPES VIRUS INFECTION
     Dosage: UNK
     Dates: start: 19920101
  2. LISINOPRIL [Concomitant]
     Indication: BLOOD CHOLESTEROL INCREASED
     Dosage: UNK
     Dates: start: 19990101
  3. DICLOFENAC [Concomitant]
     Indication: OSTEOARTHRITIS
     Dosage: UNK
     Dates: start: 20030101
  4. CHANTIX [Suspect]
     Indication: SMOKING CESSATION THERAPY
     Dosage: UNK
     Dates: start: 20070501, end: 20080501

REACTIONS (7)
  - AMNESIA [None]
  - ANXIETY [None]
  - LOSS OF CONSCIOUSNESS [None]
  - AGGRESSION [None]
  - MOOD SWINGS [None]
  - DEPRESSION [None]
  - SUICIDAL IDEATION [None]
